FAERS Safety Report 8056086-9 (Version None)
Quarter: 2012Q1

REPORT INFORMATION
  Report Type: 
  Country: None (occurrence: None)
  Receive Date: 20120119
  Receipt Date: 20120111
  Transmission Date: 20120608
  Serious: Yes (Hospitalization)
  Sender: FDA-Public Use
  Company Number: FR-JNJFOC-20120104444

PATIENT
  Sex: Male

DRUGS (6)
  1. ATORVASTATIN CALCIUM [Concomitant]
  2. XARELTO [Suspect]
     Indication: KNEE OPERATION
     Route: 048
     Dates: start: 20110930, end: 20111014
  3. VERAPAMIL [Concomitant]
  4. CLOPIDOGREL [Concomitant]
  5. ASPEGIC 325 [Concomitant]
  6. OMEPRAZOLE [Concomitant]

REACTIONS (3)
  - VENOUS THROMBOSIS [None]
  - ANAEMIA [None]
  - HAEMATOMA [None]
